FAERS Safety Report 11614975 (Version 1)
Quarter: 2015Q4

REPORT INFORMATION
  Report Type: Spontaneous
  Country: US (occurrence: US)
  Receive Date: 20151009
  Receipt Date: 20151009
  Transmission Date: 20160304
  Serious: No
  Sender: FDA-Public Use
  Company Number: US-ASTRAZENECA-2015SE94058

PATIENT
  Age: 22889 Day
  Sex: Female
  Weight: 83.5 kg

DRUGS (4)
  1. METFORMIN [Concomitant]
     Active Substance: METFORMIN HYDROCHLORIDE
     Indication: TYPE 2 DIABETES MELLITUS
  2. BYDUREON [Suspect]
     Active Substance: EXENATIDE
     Indication: TYPE 2 DIABETES MELLITUS
     Route: 058
     Dates: start: 20150826
  3. JANUVIA [Concomitant]
     Active Substance: SITAGLIPTIN PHOSPHATE
     Indication: TYPE 2 DIABETES MELLITUS
  4. ZETIA [Suspect]
     Active Substance: EZETIMIBE
     Indication: BLOOD CHOLESTEROL INCREASED
     Route: 065

REACTIONS (7)
  - Pain in extremity [Unknown]
  - Headache [Unknown]
  - Cough [Unknown]
  - Gait disturbance [Unknown]
  - Product quality issue [Unknown]
  - Musculoskeletal chest pain [Unknown]
  - Underdose [Unknown]

NARRATIVE: CASE EVENT DATE: 201509
